FAERS Safety Report 7220775-6 (Version None)
Quarter: 2011Q1

REPORT INFORMATION
  Report Type: 
  Country: None (occurrence: None)
  Receive Date: 20110111
  Receipt Date: 20101213
  Transmission Date: 20110831
  Serious: Yes (Other)
  Sender: FDA-Public Use
  Company Number: FR-BAYER-201040681GPV

PATIENT
  Sex: Male
  Weight: 73 kg

DRUGS (2)
  1. CIPROFLOXACIN HYDROCHLORIDE [Suspect]
     Indication: CYSTITIS
     Dosage: 500 MG, QD
     Route: 048
     Dates: start: 20100812, end: 20100814
  2. CIPROFLOXACIN HYDROCHLORIDE [Suspect]
     Indication: URINARY TRACT INFECTION
     Dosage: 1000 MG (DAILY DOSE), BID,
     Route: 048
     Dates: start: 20100809, end: 20100811

REACTIONS (7)
  - MUSCLE RUPTURE [None]
  - PAIN IN EXTREMITY [None]
  - ECCHYMOSIS [None]
  - JOINT SWELLING [None]
  - LIGAMENT DISORDER [None]
  - ARTHRALGIA [None]
  - OEDEMA PERIPHERAL [None]
